FAERS Safety Report 25069002 (Version 2)
Quarter: 2025Q1

REPORT INFORMATION
  Report Type: Spontaneous
  Country: US (occurrence: US)
  Receive Date: 20250312
  Receipt Date: 20250312
  Transmission Date: 20250409
  Serious: Yes (Hospitalization, Other)
  Sender: SANOFI AVENTIS
  Company Number: US-SA-2025SA067419

PATIENT
  Age: 43 Year
  Sex: Male
  Weight: 88.45 kg

DRUGS (1)
  1. REZUROCK [Suspect]
     Active Substance: BELUMOSUDIL
     Indication: Chronic graft versus host disease
     Dosage: 200 MG, QD (1 DOSE EVERY 1 DAY)
     Route: 048
     Dates: start: 20240409

REACTIONS (1)
  - Pneumonia [Unknown]
